FAERS Safety Report 24838257 (Version 1)
Quarter: 2025Q1

REPORT INFORMATION
  Report Type: Spontaneous
  Country: US (occurrence: None)
  Receive Date: 20250113
  Receipt Date: 20250113
  Transmission Date: 20250409
  Serious: No
  Sender: FDA-CTU
  Company Number: None

PATIENT
  Age: 65 Year
  Sex: Female

DRUGS (1)
  1. RADICAVA ORS [Suspect]
     Active Substance: EDARAVONE
     Dosage: 5 MG DAILY ORAL
     Route: 048
     Dates: start: 20241221, end: 20250104

REACTIONS (4)
  - Erythema [None]
  - Burning sensation [None]
  - Therapy cessation [None]
  - Pruritus [None]

NARRATIVE: CASE EVENT DATE: 20241228
